FAERS Safety Report 17420981 (Version 1)
Quarter: 2020Q1

REPORT INFORMATION
  Report Type: Spontaneous
  Country: US (occurrence: US)
  Receive Date: 20200214
  Receipt Date: 20200214
  Transmission Date: 20200409
  Serious: No
  Sender: FDA-Public Use
  Company Number: US-THERAPEUTICSMD-2020TMD00045

PATIENT
  Age: 50 Year
  Sex: Female

DRUGS (3)
  1. BIJUVA [Suspect]
     Active Substance: ESTRADIOL\PROGESTERONE
     Dosage: 1 CAPSULES, 1X/DAY
     Dates: start: 201909, end: 20191219
  2. BIJUVA [Suspect]
     Active Substance: ESTRADIOL\PROGESTERONE
     Dosage: 1 CAPSULES, EVERY 48 HOURS
     Dates: start: 20191230
  3. BIJUVA [Suspect]
     Active Substance: ESTRADIOL\PROGESTERONE
     Dosage: 1 CAPSULES ^TAPERING OFF^

REACTIONS (10)
  - Pain in extremity [Unknown]
  - Pyrexia [Recovered/Resolved]
  - Constipation [Unknown]
  - Product dose omission [Recovered/Resolved]
  - Nausea [Not Recovered/Not Resolved]
  - Breast tenderness [Unknown]
  - Breast pain [Recovered/Resolved]
  - Arthralgia [Unknown]
  - Vomiting [Recovered/Resolved]
  - Temperature intolerance [Unknown]

NARRATIVE: CASE EVENT DATE: 2019
